FAERS Safety Report 11482915 (Version 2)
Quarter: 2015Q3

REPORT INFORMATION
  Report Type: Spontaneous
  Country: US (occurrence: US)
  Receive Date: 20150903
  Receipt Date: 20150903
  Transmission Date: 20151125
  Serious: No
  Sender: FDA-Public Use
  Company Number: US-ELI_LILLY_AND_COMPANY-US201201005763

PATIENT
  Age: 48 Year
  Sex: Female
  Weight: 81.63 kg

DRUGS (1)
  1. CYMBALTA [Suspect]
     Active Substance: DULOXETINE HYDROCHLORIDE
     Indication: DEPRESSION
     Dosage: 60 MG, BID
     Route: 048
     Dates: start: 201104, end: 201203

REACTIONS (2)
  - Stomatitis [Recovering/Resolving]
  - Visual acuity reduced [Recovering/Resolving]
